FAERS Safety Report 12740465 (Version 3)
Quarter: 2016Q4

REPORT INFORMATION
  Report Type: Report from Study
  Country: US (occurrence: US)
  Receive Date: 20160913
  Receipt Date: 20161010
  Transmission Date: 20170207
  Serious: Yes (Other)
  Sender: FDA-Public Use
  Company Number: US-AMGEN-USASP2016121567

PATIENT
  Age: 60 Year
  Sex: Female

DRUGS (1)
  1. ENBREL [Suspect]
     Active Substance: ETANERCEPT
     Indication: RHEUMATOID ARTHRITIS
     Dosage: UNK UNK, QWK
     Route: 065
     Dates: start: 201608

REACTIONS (14)
  - Intervertebral disc annular tear [Unknown]
  - Back pain [Not Recovered/Not Resolved]
  - Hypoaesthesia [Unknown]
  - Mood altered [Unknown]
  - Neck pain [Not Recovered/Not Resolved]
  - Gait disturbance [Unknown]
  - Injection site swelling [Unknown]
  - Musculoskeletal pain [Unknown]
  - Abdominal discomfort [Unknown]
  - Pain in extremity [Not Recovered/Not Resolved]
  - Pain [Not Recovered/Not Resolved]
  - Gastrooesophageal reflux disease [Unknown]
  - Injection site erythema [Unknown]
  - Weight increased [Unknown]

NARRATIVE: CASE EVENT DATE: 2016
